FAERS Safety Report 5717847-1 (Version None)
Quarter: 2008Q2

REPORT INFORMATION
  Report Type: 
  Country: None (occurrence: None)
  Receive Date: 20080425
  Receipt Date: 20080414
  Transmission Date: 20081010
  Serious: Yes (Hospitalization, Other)
  Sender: FDA-Public Use
  Company Number: US-JNJFOC-20080405416

PATIENT
  Sex: Female
  Weight: 68.04 kg

DRUGS (13)
  1. DURAGESIC-100 [Suspect]
     Route: 062
  2. DURAGESIC-100 [Suspect]
     Route: 062
  3. DURAGESIC-100 [Suspect]
     Route: 062
  4. DURAGESIC-100 [Suspect]
     Indication: PAIN
     Route: 062
  5. ENBREL [Suspect]
     Indication: RHEUMATOID ARTHRITIS
     Route: 058
  6. VALIUM [Concomitant]
     Indication: MUSCLE SPASMS
     Route: 048
  7. ZOLOFT [Concomitant]
     Indication: DEPRESSION
     Dosage: 1.5 EVERY DAY
     Route: 048
  8. RESTORIL [Concomitant]
     Route: 048
  9. COMPAZINE [Concomitant]
     Indication: NAUSEA
     Dosage: AS NEEDED
     Route: 054
  10. PEPCID [Concomitant]
     Indication: DYSPEPSIA
     Route: 048
  11. SENOKOT [Concomitant]
     Indication: CONSTIPATION
     Route: 048
  12. LIDODERM [Concomitant]
     Indication: PAIN
     Dosage: AS NEEDED
     Route: 048
  13. TIGER BALM [Concomitant]
     Indication: PAIN
     Route: 061

REACTIONS (20)
  - CHOLELITHIASIS [None]
  - FEELING ABNORMAL [None]
  - HEADACHE [None]
  - HERPES SIMPLEX [None]
  - INCORRECT DRUG ADMINISTRATION DURATION [None]
  - INCREASED UPPER AIRWAY SECRETION [None]
  - MULTIPLE ALLERGIES [None]
  - NEURALGIA [None]
  - NIPPLE PAIN [None]
  - OEDEMA PERIPHERAL [None]
  - PAIN [None]
  - PHARYNGOLARYNGEAL PAIN [None]
  - PNEUMONIA [None]
  - PSORIASIS [None]
  - PYREXIA [None]
  - RASH [None]
  - SINUS HEADACHE [None]
  - SPUTUM DISCOLOURED [None]
  - WEIGHT INCREASED [None]
  - WRONG TECHNIQUE IN DRUG USAGE PROCESS [None]
